FAERS Safety Report 5261937-7 (Version None)
Quarter: 2007Q1

REPORT INFORMATION
  Report Type: 
  Country: None (occurrence: None)
  Receive Date: 20070308
  Receipt Date: 20070220
  Transmission Date: 20070707
  Serious: Yes (Death, Hospitalization)
  Sender: FDA-Public Use
  Company Number: 102

PATIENT
  Sex: Male

DRUGS (1)
  1. FAZACLO ODT [Suspect]
     Dosage: 25 MG PO DAILY
     Route: 048
     Dates: start: 20061031, end: 20070216

REACTIONS (3)
  - FALL [None]
  - HIP FRACTURE [None]
  - PNEUMONIA [None]
